FAERS Safety Report 7879820-7 (Version None)
Quarter: 2011Q4

REPORT INFORMATION
  Report Type: 
  Country: None (occurrence: None)
  Receive Date: 20111101
  Receipt Date: 20111027
  Transmission Date: 20120403
  Serious: Yes (Other)
  Sender: FDA-Public Use
  Company Number: US-ABBOTT-11P-163-0868679-00

PATIENT
  Age: 32 Year
  Sex: Female

DRUGS (4)
  1. HUMIRA [Suspect]
     Indication: PRODUCT USED FOR UNKNOWN INDICATION
     Dates: start: 20071001, end: 20080101
  2. METHOTREXATE [Concomitant]
     Indication: PAIN IN EXTREMITY
     Dates: start: 20030101
  3. METHOTREXATE [Concomitant]
     Indication: PAIN IN JAW
  4. HUMIRA [Suspect]
     Dates: start: 20090201, end: 20100111

REACTIONS (8)
  - SINUSITIS [None]
  - INFLUENZA LIKE ILLNESS [None]
  - LYMPHADENOPATHY [None]
  - DRUG DOSE OMISSION [None]
  - ALOPECIA [None]
  - MALAISE [None]
  - HODGKIN'S DISEASE [None]
  - COUGH [None]
